FAERS Safety Report 23175256 (Version 3)
Quarter: 2024Q2

REPORT INFORMATION
  Report Type: Report from Study
  Country: CA (occurrence: CA)
  Receive Date: 20231113
  Receipt Date: 20240624
  Transmission Date: 20240716
  Serious: Yes (Other)
  Sender: FDA-Public Use
  Company Number: CA-JNJFOC-20221021641

PATIENT
  Age: 59 Year
  Sex: Female
  Weight: 83 kg

DRUGS (5)
  1. REMICADE [Suspect]
     Active Substance: INFLIXIMAB
     Indication: Crohn^s disease
     Dosage: EXPIRY DATE- 01-APR-2026
     Route: 041
     Dates: start: 20191211
  2. REMICADE [Suspect]
     Active Substance: INFLIXIMAB
     Indication: Colitis ulcerative
     Dosage: EXP-03/26
     Route: 041
     Dates: start: 20191211
  3. REMICADE [Suspect]
     Active Substance: INFLIXIMAB
     Dosage: EXP-03/26. PATIENT HAD 30 INFUSION STILL NOW.
     Route: 041
     Dates: start: 20191128
  4. REMICADE [Suspect]
     Active Substance: INFLIXIMAB
     Route: 041
     Dates: start: 20191211
  5. IMURAN [Concomitant]
     Active Substance: AZATHIOPRINE

REACTIONS (2)
  - Precancerous cells present [Unknown]
  - COVID-19 [Recovered/Resolved]

NARRATIVE: CASE EVENT DATE: 20221004
